FAERS Safety Report 20855766 (Version 3)
Quarter: 2022Q2

REPORT INFORMATION
  Report Type: Report from Study
  Country: CN (occurrence: CN)
  Receive Date: 20220520
  Receipt Date: 20220613
  Transmission Date: 20220721
  Serious: Yes (Death)
  Sender: FDA-Public Use
  Company Number: CN-PFIZER INC-202200722788

PATIENT
  Age: 74 Year
  Sex: Female
  Weight: 41 kg

DRUGS (1)
  1. CRIZOTINIB [Suspect]
     Active Substance: CRIZOTINIB
     Indication: Metastases to central nervous system
     Dosage: START DATE OF MOST RECENT DOSE OF STUDY DRUG PRIOR TO AE: 15-MAR-2022 (250 MG) (500 MG, 2 IN 1 D)
     Route: 048
     Dates: start: 20220309, end: 20220315

REACTIONS (1)
  - Death [Fatal]

NARRATIVE: CASE EVENT DATE: 20220327
